FAERS Safety Report 4379090-0 (Version None)
Quarter: 2004Q2

REPORT INFORMATION
  Report Type: 
  Country: None (occurrence: None)
  Receive Date: 20040610
  Receipt Date: 20040601
  Transmission Date: 20050107
  Serious: Yes (Life-Threatening)
  Sender: FDA-Public Use
  Company Number: 2004AP02340

PATIENT
  Age: 66 Year
  Sex: Male

DRUGS (6)
  1. MEROPEN [Suspect]
     Indication: PNEUMONIA
     Dosage: 0.5 G DAILY IVD
     Route: 041
     Dates: start: 20040210, end: 20040220
  2. MEROPEN [Suspect]
     Indication: PNEUMONIA
     Dosage: 0.5 G DAILY IVD
     Route: 041
     Dates: start: 20040225, end: 20040310
  3. NORVASC [Concomitant]
  4. GASTER D [Concomitant]
  5. FUNGUARD [Concomitant]
  6. CONC. RBC TRANSFUSION [Concomitant]

REACTIONS (1)
  - DEPRESSED LEVEL OF CONSCIOUSNESS [None]
